FAERS Safety Report 7144962-0 (Version None)
Quarter: 2010Q4

REPORT INFORMATION
  Report Type: 
  Country: None (occurrence: None)
  Receive Date: 20101208
  Receipt Date: 20101129
  Transmission Date: 20110411
  Serious: Yes (Hospitalization)
  Sender: FDA-Public Use
  Company Number: US-ASTRAZENECA-2010SE56662

PATIENT
  Age: 78 Year
  Sex: Male
  Weight: 76 kg

DRUGS (6)
  1. TENORETIC 100 [Suspect]
     Indication: HYPERTENSION
     Route: 048
     Dates: start: 20100920
  2. TAK-700 [Suspect]
     Indication: PROSTATE CANCER
     Route: 048
     Dates: start: 20100302, end: 20101020
  3. PREDNISOLONE [Suspect]
     Indication: PROSTATE CANCER
     Route: 048
     Dates: start: 20100302, end: 20101020
  4. METFORMIN [Concomitant]
     Dates: start: 20101005
  5. SIMCOR [Concomitant]
     Dates: start: 20100927
  6. GLIPIZIDE [Concomitant]
     Dates: start: 20100505

REACTIONS (4)
  - HAEMOGLOBIN DECREASED [None]
  - HYPOKALAEMIA [None]
  - PAIN IN EXTREMITY [None]
  - PERIPHERAL SENSORY NEUROPATHY [None]
